FAERS Safety Report 6107346-X (Version None)
Quarter: 2009Q1

REPORT INFORMATION
  Report Type: 
  Country: None (occurrence: None)
  Receive Date: 20090309
  Receipt Date: 20090306
  Transmission Date: 20090719
  Serious: Yes (Hospitalization)
  Sender: FDA-Public Use
  Company Number: NL-PFIZER INC-2009160163

PATIENT

DRUGS (4)
  1. LIPITOR [Suspect]
     Indication: HYPERCHOLESTEROLAEMIA
     Dosage: FREQUENCY: EVERY DAY;
     Route: 048
     Dates: start: 20080401, end: 20081112
  2. KETOCONAZOLE [Interacting]
     Route: 061
  3. ACETYLSALICYLIC ACID [Concomitant]
     Dates: start: 20080401
  4. COZAAR [Concomitant]
     Dates: start: 20080401

REACTIONS (2)
  - DRUG INTERACTION [None]
  - RHABDOMYOLYSIS [None]
